FAERS Safety Report 5815267-2 (Version None)
Quarter: 2008Q3

REPORT INFORMATION
  Report Type: 
  Country: None (occurrence: None)
  Receive Date: 20080718
  Receipt Date: 20080624
  Transmission Date: 20090109
  Serious: No
  Sender: FDA-Public Use
  Company Number: US-BOEHRINGER INGELHEIM GMBH, GERMANY-2008-BP-09813BP

PATIENT
  Age: 55 Year
  Sex: Female
  Weight: 72 kg

DRUGS (6)
  1. MIRAPEX [Suspect]
     Indication: RESTLESS LEGS SYNDROME
     Dates: end: 20080530
  2. HYDROCHLOROTHIAZIDE [Concomitant]
     Dates: start: 20000301
  3. XANAX [Concomitant]
     Dates: start: 20000301
  4. ADVAIR DISKUS 100/50 [Concomitant]
     Dates: start: 20030401
  5. SINGULAIR [Concomitant]
     Dates: start: 20030401
  6. PEPCID [Concomitant]
     Dates: start: 20070401

REACTIONS (2)
  - HYPERAESTHESIA [None]
  - PARAESTHESIA ORAL [None]
